FAERS Safety Report 7099973-0 (Version None)
Quarter: 2010Q4

REPORT INFORMATION
  Report Type: 
  Country: None (occurrence: None)
  Receive Date: 20101112
  Receipt Date: 20101104
  Transmission Date: 20110411
  Serious: Yes (Hospitalization)
  Sender: FDA-Public Use
  Company Number: US-BAYER-201039749NA

PATIENT
  Sex: Female

DRUGS (3)
  1. AVELOX [Suspect]
     Indication: SINUSITIS
     Dosage: TOTAL DAILY DOSE: 400 MG  UNIT DOSE: 400 MG
     Route: 048
  2. ANTIBIOTIC [Concomitant]
  3. FLAGYL [Concomitant]

REACTIONS (2)
  - DIVERTICULITIS [None]
  - EPISTAXIS [None]
